FAERS Safety Report 6306565-7 (Version None)
Quarter: 2009Q3

REPORT INFORMATION
  Report Type: 
  Country: None (occurrence: None)
  Receive Date: 20090812
  Receipt Date: 20090805
  Transmission Date: 20100115
  Serious: Yes (Other)
  Sender: FDA-Public Use
  Company Number: A0779194A

PATIENT
  Age: 68 Year
  Sex: Female

DRUGS (4)
  1. TREXIMET [Suspect]
     Indication: MIGRAINE
     Dosage: .5TAB AS REQUIRED
     Route: 048
     Dates: start: 20090412, end: 20090413
  2. LEVOXYL [Concomitant]
  3. BONIVA [Concomitant]
  4. PAROXETINE [Concomitant]

REACTIONS (11)
  - ABNORMAL DREAMS [None]
  - AGITATION [None]
  - ASTHENIA [None]
  - DIZZINESS [None]
  - DYSGRAPHIA [None]
  - HALLUCINATION [None]
  - INSOMNIA [None]
  - MENTAL IMPAIRMENT [None]
  - NAUSEA [None]
  - SPEECH DISORDER [None]
  - WRONG TECHNIQUE IN DRUG USAGE PROCESS [None]
